FAERS Safety Report 7934251-6 (Version None)
Quarter: 2011Q4

REPORT INFORMATION
  Report Type: 
  Country: None (occurrence: None)
  Receive Date: 20111122
  Receipt Date: 20111115
  Transmission Date: 20120403
  Serious: Yes (Hospitalization, Other)
  Sender: FDA-Public Use
  Company Number: US-US-EMD SERONO, INC.-7060426

PATIENT
  Sex: Female

DRUGS (3)
  1. REBIF [Suspect]
     Indication: MULTIPLE SCLEROSIS
     Route: 058
     Dates: start: 20040224
  2. HYDROCHOL [Concomitant]
  3. DARVOCET [Concomitant]
     Indication: PAIN

REACTIONS (12)
  - DYSPNOEA [None]
  - CHEST PAIN [None]
  - HYPERTENSION [None]
  - BLOOD CHOLESTEROL INCREASED [None]
  - BACK PAIN [None]
  - EMOTIONAL DISORDER [None]
  - DEPRESSION [None]
  - SUICIDAL IDEATION [None]
  - ANXIETY [None]
  - BLOOD POTASSIUM DECREASED [None]
  - PAIN IN EXTREMITY [None]
  - PAIN [None]
